FAERS Safety Report 14251485 (Version 13)
Quarter: 2019Q3

REPORT INFORMATION
  Report Type: Spontaneous
  Country: US (occurrence: US)
  Receive Date: 20171205
  Receipt Date: 20190731
  Transmission Date: 20191004
  Serious: Yes (Hospitalization)
  Sender: FDA-Public Use
  Company Number: US-ACTELION-A-NJ2017-163595

PATIENT
  Age: 49 Year
  Sex: Female
  Weight: 120.64 kg

DRUGS (26)
  1. SILDENAFIL. [Suspect]
     Active Substance: SILDENAFIL
     Indication: PULMONARY ARTERIAL HYPERTENSION
     Dosage: 20 MG, TID
     Route: 065
     Dates: start: 20171116
  2. LOSARTAN. [Concomitant]
     Active Substance: LOSARTAN
  3. REMODULIN [Concomitant]
     Active Substance: TREPROSTINIL
     Dosage: UNK
     Route: 042
     Dates: start: 20190606
  4. PANTOPRAZOLE [Concomitant]
     Active Substance: PANTOPRAZOLE
  5. POTASSIUM [Concomitant]
     Active Substance: POTASSIUM
  6. CYANOCOBALAMIN. [Concomitant]
     Active Substance: CYANOCOBALAMIN
     Dosage: UNK
     Dates: start: 20190522
  7. ALLOPURINOL. [Concomitant]
     Active Substance: ALLOPURINOL
  8. FORMOTEROL [Concomitant]
     Active Substance: FORMOTEROL
     Dosage: UNK
     Dates: start: 20190522
  9. REVATIO [Concomitant]
     Active Substance: SILDENAFIL CITRATE
     Dosage: UNK
     Dates: start: 20190522
  10. DULERA [Concomitant]
     Active Substance: FORMOTEROL FUMARATE DIHYDRATE\MOMETASONE FUROATE
  11. ORENITRAM [Concomitant]
     Active Substance: TREPROSTINIL
  12. BUMEX [Concomitant]
     Active Substance: BUMETANIDE
  13. ARFORMOTEROL [Concomitant]
     Active Substance: ARFORMOTEROL
     Dosage: UNK
     Dates: start: 20190612
  14. LASIX [Concomitant]
     Active Substance: FUROSEMIDE
  15. NIFEDIPINE. [Concomitant]
     Active Substance: NIFEDIPINE
     Dosage: 90 MG, UNK
  16. POTASSIUM CHLORIDE. [Concomitant]
     Active Substance: POTASSIUM CHLORIDE
     Dosage: UNK
     Dates: start: 20190612
  17. BUDESONIDE. [Concomitant]
     Active Substance: BUDESONIDE
     Dosage: UNK
     Dates: start: 20190612
  18. LEVOTHYROXINE. [Concomitant]
     Active Substance: LEVOTHYROXINE
  19. PROTONIX [Concomitant]
     Active Substance: PANTOPRAZOLE SODIUM
     Dosage: UNK
     Dates: start: 20190522
  20. OPSUMIT [Suspect]
     Active Substance: MACITENTAN
     Indication: PULMONARY ARTERIAL HYPERTENSION
     Dosage: 10 MG, QD
     Route: 048
     Dates: start: 20170809
  21. SPIRONOLACTONE. [Concomitant]
     Active Substance: SPIRONOLACTONE
  22. VITAMIN B12 [Concomitant]
     Active Substance: CYANOCOBALAMIN
  23. VITAMIN D [Concomitant]
     Active Substance: VITAMIN D NOS
  24. APRESOLIN [Concomitant]
     Active Substance: HYDRALAZINE HYDROCHLORIDE
  25. BETHANECHOL [Concomitant]
     Active Substance: BETHANECHOL
  26. OXYGEN. [Concomitant]
     Active Substance: OXYGEN
     Dosage: 4 L
     Dates: start: 20190612

REACTIONS (29)
  - Dizziness [Recovered/Resolved]
  - Abdominal discomfort [Not Recovered/Not Resolved]
  - Therapy non-responder [Unknown]
  - Constipation [Not Recovered/Not Resolved]
  - Gastrointestinal disorder [Unknown]
  - Dyspnoea [Unknown]
  - Acute kidney injury [Recovered/Resolved]
  - Chronic kidney disease [Not Recovered/Not Resolved]
  - Pulmonary arterial hypertension [Unknown]
  - Generalised oedema [Recovered/Resolved]
  - Oedema [Recovered/Resolved]
  - Hypoxia [Unknown]
  - Fall [Recovered/Resolved]
  - Malaise [Recovered/Resolved]
  - Hypersomnia [Not Recovered/Not Resolved]
  - Oxygen saturation decreased [Unknown]
  - Hospitalisation [Unknown]
  - Diarrhoea [Not Recovered/Not Resolved]
  - Orthopnoea [Unknown]
  - Blood creatinine increased [Recovered/Resolved]
  - Memory impairment [Unknown]
  - Product dose omission [Unknown]
  - Fatigue [Recovered/Resolved]
  - Oedema peripheral [Unknown]
  - Haemoglobin decreased [Unknown]
  - Lethargy [Not Recovered/Not Resolved]
  - Decreased interest [Not Recovered/Not Resolved]
  - Blood pressure decreased [Not Recovered/Not Resolved]
  - Respiratory failure [Recovered/Resolved]

NARRATIVE: CASE EVENT DATE: 201709
